FAERS Safety Report 20932774 (Version 4)
Quarter: 2022Q3

REPORT INFORMATION
  Report Type: Report from Study
  Country: US (occurrence: US)
  Receive Date: 20220608
  Receipt Date: 20220727
  Transmission Date: 20221027
  Serious: No
  Sender: FDA-Public Use
  Company Number: US-NOVARTISTESTPH-NVSC2022US131750

PATIENT
  Sex: Female

DRUGS (1)
  1. ENTRESTO [Suspect]
     Active Substance: SACUBITRIL\VALSARTAN
     Indication: Product used for unknown indication
     Dosage: 50 MG, BID (24/26 MG)
     Route: 048

REACTIONS (7)
  - Dry throat [Unknown]
  - Oropharyngeal discomfort [Unknown]
  - Goitre [Unknown]
  - Dysphagia [Unknown]
  - Cough [Recovering/Resolving]
  - Temperature intolerance [Unknown]
  - Nausea [Unknown]
